FAERS Safety Report 16570719 (Version 2)
Quarter: 2019Q3

REPORT INFORMATION
  Report Type: Spontaneous
  Country: US (occurrence: US)
  Receive Date: 20190715
  Receipt Date: 20190730
  Transmission Date: 20191004
  Serious: Yes (Other)
  Sender: FDA-Public Use
  Company Number: US-SERB S.A.S.-2070812

PATIENT
  Age: 4 Year
  Sex: Female
  Weight: 15.6 kg

DRUGS (1)
  1. CYANOKIT [Suspect]
     Active Substance: HYDROXOCOBALAMIN
     Indication: CARBON MONOXIDE POISONING
     Route: 042
     Dates: start: 20190707, end: 20190707

REACTIONS (3)
  - Bradycardia [Recovered/Resolved]
  - Hypertension [Recovered/Resolved]
  - Product use issue [Recovered/Resolved]

NARRATIVE: CASE EVENT DATE: 20190707
